FAERS Safety Report 8582716-9 (Version None)
Quarter: 2012Q3

REPORT INFORMATION
  Report Type: 
  Country: None (occurrence: None)
  Receive Date: 20120809
  Receipt Date: 20120803
  Transmission Date: 20120928
  Serious: Yes (Life-Threatening)
  Sender: FDA-Public Use
  Company Number: FR-ROCHE-1097959

PATIENT
  Age: 77 Year
  Sex: Male

DRUGS (1)
  1. MABTHERA [Suspect]
     Indication: EXTRANODAL MARGINAL ZONE B-CELL LYMPHOMA (MALT TYPE)
     Route: 042
     Dates: start: 20061201

REACTIONS (3)
  - CARDIO-RESPIRATORY ARREST [None]
  - ACUTE PULMONARY OEDEMA [None]
  - PULMONARY HYPERTENSION [None]
